FAERS Safety Report 14768303 (Version 1)
Quarter: 2018Q2

REPORT INFORMATION
  Report Type: Report from Study
  Country: JP (occurrence: JP)
  Receive Date: 20180417
  Receipt Date: 20180417
  Transmission Date: 20180711
  Serious: Yes (Death)
  Sender: FDA-Public Use
  Company Number: JP-ASTRAZENECA-2018SE50079

PATIENT
  Age: 26432 Day
  Sex: Male

DRUGS (2)
  1. ONGLYZA [Suspect]
     Active Substance: SAXAGLIPTIN HYDROCHLORIDE
     Indication: TYPE 2 DIABETES MELLITUS
     Route: 048
     Dates: start: 20140411, end: 20160328
  2. NOVORAPID 50 MIX [Concomitant]
     Indication: TYPE 2 DIABETES MELLITUS
     Dosage: 32.0IU UNKNOWN
     Route: 058
     Dates: start: 20140613, end: 20160412

REACTIONS (1)
  - Gastric cancer [Fatal]

NARRATIVE: CASE EVENT DATE: 20160317
